FAERS Safety Report 5926626-1 (Version None)
Quarter: 2008Q4

REPORT INFORMATION
  Report Type: 
  Country: None (occurrence: None)
  Receive Date: 20081022
  Receipt Date: 20081010
  Transmission Date: 20090506
  Serious: Yes (Other)
  Sender: FDA-Public Use
  Company Number: B0540993A

PATIENT
  Age: 47 Year
  Sex: Male

DRUGS (4)
  1. SERETIDE [Suspect]
     Indication: ASTHMA
     Route: 055
  2. VENTOLIN [Suspect]
     Indication: ASTHMA
     Dosage: 100MCG AS REQUIRED
     Route: 055
  3. ATROVENT [Suspect]
     Indication: ASTHMA
  4. PREDNISOLONE [Suspect]
     Indication: ASTHMA

REACTIONS (3)
  - ASTHMA [None]
  - DYSPNOEA [None]
  - OSTEOPOROSIS [None]
